FAERS Safety Report 9973601 (Version 1)
Quarter: 2014Q1

REPORT INFORMATION
  Report Type: Report from Study
  Country: TR (occurrence: TR)
  Receive Date: 20140306
  Receipt Date: 20140306
  Transmission Date: 20141002
  Serious: Yes (Other)
  Sender: FDA-Public Use
  Company Number: TR-SA-2014SA027486

PATIENT
  Sex: Female

DRUGS (1)
  1. LEFLUNOMIDE [Suspect]
     Indication: EXPOSURE VIA FATHER
     Route: 065

REACTIONS (2)
  - Premature rupture of membranes [Unknown]
  - Exposure via father [Unknown]
